FAERS Safety Report 17869309 (Version 2)
Quarter: 2020Q3

REPORT INFORMATION
  Report Type: Spontaneous
  Country: JP (occurrence: JP)
  Receive Date: 20200608
  Receipt Date: 20200708
  Transmission Date: 20201103
  Serious: Yes (Other)
  Sender: FDA-Public Use
  Company Number: JP-BRISTOL-MYERS SQUIBB COMPANY-BMS-2020-043925

PATIENT
  Age: 53 Year
  Sex: Female

DRUGS (2)
  1. OPDIVO [Suspect]
     Active Substance: NIVOLUMAB
     Indication: UTERINE CANCER
     Dosage: UNK
     Route: 041
  2. EVEROLIMUS. [Concomitant]
     Active Substance: EVEROLIMUS
     Indication: UTERINE CANCER
     Dosage: UNK
     Route: 065

REACTIONS (3)
  - Hepatic steatosis [Unknown]
  - Hepatic failure [Unknown]
  - Intentional product use issue [Unknown]
